FAERS Safety Report 6901706-2 (Version None)
Quarter: 2010Q3

REPORT INFORMATION
  Report Type: 
  Country: None (occurrence: None)
  Receive Date: 20100802
  Receipt Date: 20100802
  Transmission Date: 20110219
  Serious: Yes (Life-Threatening, Hospitalization, Disabling)
  Sender: FDA-Public Use
  Company Number: None

PATIENT
  Age: 32 Year
  Sex: Female
  Weight: 53.5244 kg

DRUGS (1)
  1. ZELNORM [Suspect]
     Indication: IMPAIRED GASTRIC EMPTYING
     Dosage: 18MG  2XS A DAY SL
     Route: 060
     Dates: start: 20050102, end: 20070324

REACTIONS (8)
  - ACTIVITIES OF DAILY LIVING IMPAIRED [None]
  - ANGER [None]
  - CONSTIPATION [None]
  - DRUG PRESCRIBING ERROR [None]
  - ILEUS PARALYTIC [None]
  - INJURY [None]
  - THROMBOSIS [None]
  - VEIN DISORDER [None]
